FAERS Safety Report 16544170 (Version 2)
Quarter: 2019Q4

REPORT INFORMATION
  Report Type: Spontaneous
  Country: US (occurrence: US)
  Receive Date: 20190709
  Receipt Date: 20191002
  Transmission Date: 20200122
  Serious: No
  Sender: FDA-Public Use
  Company Number: US-PFIZER INC-2019290503

PATIENT
  Age: 51 Year
  Sex: Female
  Weight: 66.68 kg

DRUGS (5)
  1. CHANTIX [Suspect]
     Active Substance: VARENICLINE TARTRATE
     Dosage: 1 MG, ALTERNATE DAY (1MG EVERY OTHER DAY BY MOUTH TOWARDS THE END)
     Route: 048
     Dates: start: 201905, end: 20190524
  2. CHANTIX [Suspect]
     Active Substance: VARENICLINE TARTRATE
     Dosage: +HS BID
     Dates: start: 2019, end: 2019
  3. CHANTIX [Suspect]
     Active Substance: VARENICLINE TARTRATE
     Indication: EX-TOBACCO USER
     Dosage: 0.5 MG X+WK
     Dates: start: 20190107, end: 2019
  4. CHANTIX [Suspect]
     Active Substance: VARENICLINE TARTRATE
     Dosage: 0.5 MG, 2X/DAY +WK
     Dates: start: 2019, end: 2019
  5. CHANTIX [Suspect]
     Active Substance: VARENICLINE TARTRATE
     Dosage: + HS (BED TIME) X+WK
     Dates: start: 2019, end: 2019

REACTIONS (17)
  - Oral discomfort [Not Recovered/Not Resolved]
  - Weight increased [Unknown]
  - Intentional product misuse [Unknown]
  - Nasal mucosal disorder [Not Recovered/Not Resolved]
  - Gingival disorder [Not Recovered/Not Resolved]
  - Lip blister [Not Recovered/Not Resolved]
  - Lip exfoliation [Unknown]
  - Burning mouth syndrome [Unknown]
  - Swollen tongue [Not Recovered/Not Resolved]
  - Acarodermatitis [Not Recovered/Not Resolved]
  - Herpes simplex [Not Recovered/Not Resolved]
  - Oral lichen planus [Not Recovered/Not Resolved]
  - Drug hypersensitivity [Unknown]
  - Skin exfoliation [Unknown]
  - Lip pruritus [Not Recovered/Not Resolved]
  - Pain of skin [Unknown]
  - Oral candidiasis [Unknown]

NARRATIVE: CASE EVENT DATE: 2019
